FAERS Safety Report 8208147-9 (Version None)
Quarter: 2012Q1

REPORT INFORMATION
  Report Type: 
  Country: None (occurrence: None)
  Receive Date: 20120314
  Receipt Date: 20120306
  Transmission Date: 20120608
  Serious: Yes (Hospitalization, Other)
  Sender: FDA-Public Use
  Company Number: PHEH2011US04153

PATIENT
  Sex: Female
  Weight: 68.934 kg

DRUGS (13)
  1. FOLIC ACID [Concomitant]
     Dosage: UNK UKN, UNK
  2. VIT D3 [Concomitant]
     Dosage: UNK UKN, UNK
  3. GLEEVEC [Suspect]
     Indication: CHRONIC MYELOID LEUKAEMIA (IN REMISSION)
     Dosage: 400 MG, DAILY
     Route: 048
     Dates: start: 20110311
  4. GEMZAR [Concomitant]
     Dosage: UNK UKN, UNK
  5. XANAX [Concomitant]
     Dosage: UNK UKN, UNK
  6. VALIUM [Concomitant]
     Dosage: UNK UKN, UNK
  7. KLOR-CON [Concomitant]
     Dosage: UNK UKN, UNK
  8. CHANTIX [Concomitant]
     Dosage: UNK
  9. ASPIRIN [Concomitant]
     Dosage: UNK UKN, UNK
  10. DEXAMETHASONE [Concomitant]
     Dosage: UNK UKN, UNK
  11. CARBOPLATIN [Concomitant]
     Dosage: UNK UKN, UNK
  12. LISINOPRIL [Concomitant]
     Dosage: UNK UKN, UNK
  13. PRAVASTATIN [Concomitant]
     Dosage: UNK UKN, UNK

REACTIONS (5)
  - RED BLOOD CELL COUNT DECREASED [None]
  - RENAL PAIN [None]
  - CONTUSION [None]
  - LUNG NEOPLASM MALIGNANT [None]
  - BACK PAIN [None]
